FAERS Safety Report 14656940 (Version 1)
Quarter: 2018Q1

REPORT INFORMATION
  Report Type: Spontaneous
  Country: US (occurrence: US)
  Receive Date: 20180319
  Receipt Date: 20180319
  Transmission Date: 20180509
  Serious: No
  Sender: FDA-Public Use
  Company Number: US-SA-2017SA175431

PATIENT
  Age: 71 Year
  Sex: Male
  Weight: 190 kg

DRUGS (1)
  1. NASACORT ALLERGY 24HR [Suspect]
     Active Substance: TRIAMCINOLONE ACETONIDE
     Indication: MULTIPLE ALLERGIES
     Dosage: DAILY DOSE-2 -3 TIMES?DAILY?LESS THAN 60 SPRAYS ONLY ABOUT 20.
     Route: 045
     Dates: start: 20170817, end: 20170820

REACTIONS (2)
  - Extra dose administered [Unknown]
  - Expired product administered [Unknown]
